FAERS Safety Report 23221052 (Version 1)
Quarter: 2023Q4

REPORT INFORMATION
  Report Type: Spontaneous
  Country: FR (occurrence: None)
  Receive Date: 20231123
  Receipt Date: 20231123
  Transmission Date: 20240109
  Serious: Yes (Other)
  Sender: FDA-Public Use
  Company Number: 2023A265010

PATIENT
  Age: 72 Year
  Sex: Male

DRUGS (1)
  1. XIGDUO XR [Suspect]
     Active Substance: DAPAGLIFLOZIN PROPANEDIOL\METFORMIN HYDROCHLORIDE
     Indication: Blood glucose fluctuation
     Route: 048
     Dates: start: 2021

REACTIONS (9)
  - Weight decreased [Unknown]
  - Middle insomnia [Unknown]
  - Nocturia [Unknown]
  - Thirst [Unknown]
  - Heart rate increased [Unknown]
  - Constipation [Unknown]
  - Dry mouth [Unknown]
  - Pruritus genital [Unknown]
  - Intentional dose omission [Unknown]

NARRATIVE: CASE EVENT DATE: 20210101
